FAERS Safety Report 9115561 (Version 1)
Quarter: 2013Q1

REPORT INFORMATION
  Report Type: Spontaneous
  Country: FR (occurrence: FR)
  Receive Date: 20130225
  Receipt Date: 20130225
  Transmission Date: 20140127
  Serious: Yes (Hospitalization)
  Sender: FDA-Public Use
  Company Number: FR-PFIZER INC-2013062283

PATIENT
  Age: 39 Year
  Sex: Female

DRUGS (2)
  1. DALACINE [Suspect]
     Indication: HIDRADENITIS
     Dosage: 600 MG, 1X/DAY
     Route: 048
     Dates: start: 20121112, end: 20121126
  2. RIFADINE [Suspect]
     Indication: HIDRADENITIS
     Dosage: 600 MG, 1X/DAY
     Route: 048
     Dates: start: 20121112, end: 20121126

REACTIONS (4)
  - Drug reaction with eosinophilia and systemic symptoms [Recovered/Resolved]
  - Faecal incontinence [Unknown]
  - Urinary incontinence [Unknown]
  - Diarrhoea [Unknown]
